FAERS Safety Report 7817136-5 (Version None)
Quarter: 2011Q4

REPORT INFORMATION
  Report Type: 
  Country: None (occurrence: None)
  Receive Date: 20111017
  Receipt Date: 20111017
  Transmission Date: 20120403
  Serious: No
  Sender: FDA-Public Use
  Company Number: None

PATIENT
  Sex: Male
  Weight: 93.44 kg

DRUGS (1)
  1. BUSPIRONE HCL [Suspect]
     Indication: POST-TRAUMATIC STRESS DISORDER

REACTIONS (8)
  - THINKING ABNORMAL [None]
  - BALANCE DISORDER [None]
  - DRY SKIN [None]
  - ABNORMAL BEHAVIOUR [None]
  - FLUSHING [None]
  - DEPRESSED MOOD [None]
  - SOCIAL AVOIDANT BEHAVIOUR [None]
  - COORDINATION ABNORMAL [None]
